FAERS Safety Report 9219527 (Version 1)
Quarter: 2013Q1

REPORT INFORMATION
  Report Type: Spontaneous
  Country: US (occurrence: None)
  Receive Date: 20120828
  Receipt Date: 20120828
  Transmission Date: 20140127
  Serious: Yes (Other)
  Sender: FDA-Public Use
  Company Number: 2011BH023066

PATIENT
  Age: 35 Year
  Sex: Female

DRUGS (2)
  1. KIOVIG_LIQUID_10%_SOLUTION FOR INFUSIOIN_VIAL, GLASS *IMMUNOGLOBULIN, NORMAL HUMAN) (**UN-MAPPED CODE**) [Suspect]
     Indication: CHRONIC INFLAMMATORY DEMYELINATING POLYRADICULONEUROPATHY
     Route: 042
     Dates: start: 20110714, end: 20110714
  2. KIOVIG_LIQUID_10%_SOLUTION FOR INFUSIOIN_VIAL, GLASS *IMMUNOGLOBULIN, NORMAL HUMAN) (**UN-MAPPED CODE**) [Suspect]
     Indication: OFF LABEL USE
     Route: 042
     Dates: start: 20110714, end: 20110714

REACTIONS (3)
  - Anaphylactic reaction [None]
  - Dyspnoea [None]
  - Throat tightness [None]
